FAERS Safety Report 8585031-2 (Version None)
Quarter: 2012Q3

REPORT INFORMATION
  Report Type: 
  Country: None (occurrence: None)
  Receive Date: 20120810
  Receipt Date: 20120806
  Transmission Date: 20120928
  Serious: Yes (Hospitalization)
  Sender: FDA-Public Use
  Company Number: FR-009507513-1201FRA00067

PATIENT

DRUGS (3)
  1. ABACAVIR SULFATE/LAMIVUDINE [Suspect]
     Indication: HIV INFECTION
     Dosage: 1 DF, QD
     Route: 048
     Dates: start: 20111118, end: 20111221
  2. ISENTRESS [Suspect]
     Indication: HIV INFECTION
     Dosage: 400 MG, BID
     Route: 048
     Dates: start: 20111125, end: 20111221
  3. IMATINIB MESYLATE [Suspect]
     Indication: GASTROINTESTINAL NEOPLASM
     Dosage: 400 MG, QD
     Route: 048
     Dates: start: 20111122, end: 20111201

REACTIONS (6)
  - DERMATITIS EXFOLIATIVE [None]
  - PYREXIA [None]
  - CYTOLYTIC HEPATITIS [None]
  - EOSINOPHILIA [None]
  - NEUTROPENIA [None]
  - CHOLESTASIS [None]
